FAERS Safety Report 10014553 (Version 2)
Quarter: 2014Q1

REPORT INFORMATION
  Report Type: Spontaneous
  Country: US (occurrence: US)
  Receive Date: 20140317
  Receipt Date: 20140325
  Transmission Date: 20141002
  Serious: No
  Sender: FDA-Public Use
  Company Number: US-009507513-1403USA005319

PATIENT
  Sex: Female

DRUGS (2)
  1. OXYTROL FOR WOMEN [Suspect]
     Indication: HYPERTONIC BLADDER
     Dosage: 1 DF, Q4D
     Route: 062
     Dates: start: 20140218
  2. OXYTROL FOR WOMEN [Suspect]
     Indication: ENURESIS

REACTIONS (5)
  - Hypersensitivity [Recovering/Resolving]
  - Throat irritation [Unknown]
  - Pruritus generalised [Recovering/Resolving]
  - Drug effect decreased [Recovering/Resolving]
  - Product closure removal difficult [Unknown]
